FAERS Safety Report 4663157-3 (Version None)
Quarter: 2005Q2

REPORT INFORMATION
  Report Type: 
  Country: None (occurrence: None)
  Receive Date: 20050513
  Receipt Date: 20050502
  Transmission Date: 20051028
  Serious: Yes (Death)
  Sender: FDA-Public Use
  Company Number: FACT0500260

PATIENT
  Age: 44 Year
  Sex: Male
  Weight: 116.6 kg

DRUGS (6)
  1. FACTIVE(GEMFILOXACIN MESYLATE) TABLET, 320MG [Suspect]
     Indication: RESPIRATORY TRACT INFECTION BACTERIAL
     Dosage: 320 MG, QD, ORAL
     Route: 048
     Dates: start: 20041213, end: 20041216
  2. TRILEPTAL [Concomitant]
  3. GLUCOVANCE [Concomitant]
  4. PRAVACHOL [Concomitant]
  5. AVALIDE [Concomitant]
  6. NEXIUM [Concomitant]

REACTIONS (23)
  - BLOOD SODIUM DECREASED [None]
  - CEREBROSCLEROSIS [None]
  - CONGESTIVE CARDIOMYOPATHY [None]
  - DECREASED APPETITE [None]
  - DRUG PRESCRIBING ERROR [None]
  - DYSGEUSIA [None]
  - DYSPEPSIA [None]
  - EXCORIATION [None]
  - FALL [None]
  - FEELING ABNORMAL [None]
  - GLIOSIS [None]
  - HAEMATOCHEZIA [None]
  - HEPATIC STEATOSIS [None]
  - HYPERTENSIVE HEART DISEASE [None]
  - INSOMNIA [None]
  - NAUSEA [None]
  - PARAESTHESIA [None]
  - RESTLESSNESS [None]
  - SKIN LACERATION [None]
  - STOMACH DISCOMFORT [None]
  - SUDDEN DEATH [None]
  - TONGUE HAEMORRHAGE [None]
  - VOMITING [None]
